FAERS Safety Report 9119729 (Version 1)
Quarter: 2013Q1

REPORT INFORMATION
  Report Type: Spontaneous
  Country: FR (occurrence: FR)
  Receive Date: 20130226
  Receipt Date: 20130226
  Transmission Date: 20140127
  Serious: Yes (Hospitalization)
  Sender: FDA-Public Use
  Company Number: FR-PFIZER INC-2013063100

PATIENT
  Age: 26 Year
  Sex: Female

DRUGS (1)
  1. TRINORDIOL [Suspect]
     Indication: ORAL CONTRACEPTION
     Dosage: TRIPHASIC 30-40-30 ?G/ 50-75-125 ?G
     Route: 048

REACTIONS (2)
  - Nervous system disorder [Recovered/Resolved]
  - Migraine with aura [Recovered/Resolved]
